FAERS Safety Report 5607391-4 (Version None)
Quarter: 2008Q1

REPORT INFORMATION
  Report Type: 
  Country: None (occurrence: None)
  Receive Date: 20080130
  Receipt Date: 20080117
  Transmission Date: 20080703
  Serious: Yes (Hospitalization, Other)
  Sender: FDA-Public Use
  Company Number: US-BAYER-US-2007-005242

PATIENT
  Age: 60 Year
  Sex: Female
  Weight: 72 kg

DRUGS (10)
  1. BETASERON [Suspect]
     Indication: SECONDARY PROGRESSIVE MULTIPLE SCLEROSIS
     Dosage: UNIT DOSE: 8 MIU
     Route: 058
     Dates: start: 20000930
  2. CYTOXAN [Suspect]
     Indication: BREAST CANCER FEMALE
  3. METHOTREXATE [Suspect]
     Indication: BREAST CANCER FEMALE
  4. FLUOROURACIL [Suspect]
     Indication: BREAST CANCER FEMALE
  5. ASACOL [Concomitant]
     Indication: COLITIS
     Dosage: UNIT DOSE: 800 MG
     Route: 048
  6. LEXAPRO [Concomitant]
     Indication: DEPRESSION
     Dosage: UNIT DOSE: 10 MG
     Route: 048
  7. ARICEPT [Concomitant]
     Dosage: UNIT DOSE: 10 MG
     Route: 048
  8. AROMASIN [Concomitant]
     Indication: NEOPLASM MALIGNANT
     Dosage: UNIT DOSE: 25 MG
     Route: 048
  9. SANCTURA [Concomitant]
     Route: 048
  10. OSCAL [Concomitant]
     Route: 048

REACTIONS (12)
  - ANAEMIA [None]
  - BODY TEMPERATURE INCREASED [None]
  - BREAST CANCER FEMALE [None]
  - CATHETER SITE PAIN [None]
  - DYSPNOEA [None]
  - FATIGUE [None]
  - HYPERSOMNIA [None]
  - MALAISE [None]
  - MULTIPLE SCLEROSIS [None]
  - PULMONARY EMBOLISM [None]
  - SEPSIS [None]
  - WEIGHT DECREASED [None]
